FAERS Safety Report 25358772 (Version 1)
Quarter: 2025Q2

REPORT INFORMATION
  Report Type: Spontaneous
  Country: US (occurrence: US)
  Receive Date: 20250526
  Receipt Date: 20250526
  Transmission Date: 20250717
  Serious: Yes (Hospitalization)
  Sender: UROGEN PHARMA
  Company Number: US-UROGEN PHARMA LTD.-2025-UGN-000076

PATIENT

DRUGS (2)
  1. JELMYTO [Suspect]
     Active Substance: MITOMYCIN
     Indication: Product used for unknown indication
     Route: 065
     Dates: start: 2025, end: 2025
  2. JELMYTO [Suspect]
     Active Substance: MITOMYCIN
     Route: 065
     Dates: start: 2025, end: 2025

REACTIONS (3)
  - Adverse event [Unknown]
  - Illness [Unknown]
  - Vomiting [Unknown]

NARRATIVE: CASE EVENT DATE: 20250101
